FAERS Safety Report 5443735-4 (Version None)
Quarter: 2007Q3

REPORT INFORMATION
  Report Type: 
  Country: None (occurrence: None)
  Receive Date: 20070905
  Receipt Date: 20070828
  Transmission Date: 20080115
  Serious: Yes (Hospitalization)
  Sender: FDA-Public Use
  Company Number: US-PFIZER INC-2005080048

PATIENT
  Sex: Female
  Weight: 49.4 kg

DRUGS (6)
  1. SUTENT [Suspect]
     Indication: GASTROINTESTINAL STROMAL TUMOUR
     Route: 048
  2. METOPROLOL SUCCINATE [Concomitant]
     Route: 048
  3. DETROL LA [Concomitant]
     Route: 048
  4. VITAMIN D [Concomitant]
     Route: 048
  5. CALCIUM [Concomitant]
     Route: 048
  6. SINEMET [Concomitant]
     Route: 048

REACTIONS (2)
  - DEHYDRATION [None]
  - SYNCOPE [None]
